FAERS Safety Report 6729891-6 (Version None)
Quarter: 2010Q2

REPORT INFORMATION
  Report Type: 
  Country: None (occurrence: None)
  Receive Date: 20100518
  Receipt Date: 20100504
  Transmission Date: 20101027
  Serious: Yes (Other)
  Sender: FDA-Public Use
  Company Number: PHHY2010US28842

PATIENT
  Age: 84 Year
  Sex: Female

DRUGS (1)
  1. DIOVAN HCT [Suspect]
     Dosage: 160/25 (UNKNOWN UNITS)
     Dates: start: 20100101

REACTIONS (2)
  - AORTIC ANEURYSM [None]
  - HYPERTENSION [None]
